FAERS Safety Report 5356521-0 (Version None)
Quarter: 2007Q2

REPORT INFORMATION
  Report Type: 
  Country: None (occurrence: None)
  Receive Date: 20070530
  Receipt Date: 20061214
  Transmission Date: 20071010
  Serious: Yes (Hospitalization)
  Sender: FDA-Public Use
  Company Number: US200608006262

PATIENT
  Age: 24 Year
  Sex: Male
  Weight: 204.1 kg

DRUGS (1)
  1. ZYPREXA [Suspect]
     Indication: SCHIZOPHRENIA
     Dosage: 15 MG
     Dates: start: 20010115, end: 20011029

REACTIONS (6)
  - ABDOMINAL DISCOMFORT [None]
  - DIABETES MELLITUS [None]
  - HYPERTENSION [None]
  - PAIN [None]
  - STOMACH DISCOMFORT [None]
  - VISION BLURRED [None]
